FAERS Safety Report 5776168-1 (Version None)
Quarter: 2008Q2

REPORT INFORMATION
  Report Type: 
  Country: None (occurrence: None)
  Receive Date: 20080613
  Receipt Date: 20080530
  Transmission Date: 20081010
  Serious: Yes (Life-Threatening, Other)
  Sender: FDA-Public Use
  Company Number: 2008S1009531

PATIENT
  Age: 69 Year
  Sex: Male

DRUGS (8)
  1. CETIRIZINE HCL [Suspect]
     Indication: PRURITUS
     Dosage: 10 MG; DAILY; ORAL
     Route: 048
     Dates: start: 20060523
  2. AMLODIPINE [Suspect]
     Indication: HYPERTENSION
     Dosage: 5 MG; DAILY; ORAL
     Route: 048
     Dates: end: 20060525
  3. AMBISOME [Suspect]
     Indication: SYSTEMIC CANDIDA
     Dosage: 3 MG; INTRAVENOUS, 1 MG; INTRAVENOUS
     Route: 042
     Dates: start: 20060422, end: 20060519
  4. AMBISOME [Suspect]
     Indication: SYSTEMIC CANDIDA
     Dosage: 3 MG; INTRAVENOUS, 1 MG; INTRAVENOUS
     Route: 042
     Dates: start: 20060519, end: 20060602
  5. CALCICHEW /00108001/ [Concomitant]
  6. DARBEPOETIN ALFA [Concomitant]
  7. OMEPRAZOLE [Concomitant]
  8. SODIUM BICARBONATE [Concomitant]

REACTIONS (6)
  - ARRHYTHMIA SUPRAVENTRICULAR [None]
  - ATRIAL FLUTTER [None]
  - BLOOD MAGNESIUM DECREASED [None]
  - BLOOD PRESSURE DECREASED [None]
  - HAEMOGLOBIN DECREASED [None]
  - HEART RATE INCREASED [None]
